FAERS Safety Report 10159114 (Version 1)
Quarter: 2014Q2

REPORT INFORMATION
  Report Type: Spontaneous
  Country: US (occurrence: US)
  Receive Date: 20140508
  Receipt Date: 20140508
  Transmission Date: 20141212
  Serious: No
  Sender: FDA-Public Use
  Company Number: US-009507513-1404USA006532

PATIENT
  Sex: Female

DRUGS (1)
  1. DULERA [Suspect]
     Dosage: 2 PUFFS, TWICE DAILY
     Route: 055

REACTIONS (5)
  - Bronchitis [Unknown]
  - Sinusitis [Unknown]
  - Malaise [Unknown]
  - Drug dose omission [Unknown]
  - Product container issue [Unknown]
